FAERS Safety Report 6071565-1 (Version None)
Quarter: 2009Q1

REPORT INFORMATION
  Report Type: 
  Country: None (occurrence: None)
  Receive Date: 20090210
  Receipt Date: 20090205
  Transmission Date: 20090719
  Serious: Yes (Other)
  Sender: FDA-Public Use
  Company Number: AU-JNJFOC-20090200690

PATIENT
  Sex: Female

DRUGS (1)
  1. HALDOL [Suspect]
     Indication: DRUG USE FOR UNKNOWN INDICATION
     Route: 042

REACTIONS (7)
  - CYST [None]
  - DIABETES MELLITUS [None]
  - DRUG EXPOSURE DURING PREGNANCY [None]
  - FLUID RETENTION [None]
  - RENAL FAILURE [None]
  - VISUAL ACUITY REDUCED [None]
  - WEIGHT INCREASED [None]
